FAERS Safety Report 11121262 (Version 1)
Quarter: 2015Q2

REPORT INFORMATION
  Report Type: Spontaneous
  Country: None (occurrence: None)
  Receive Date: 20150518
  Receipt Date: 20150518
  Transmission Date: 20150821
  Serious: Yes (Disabling)
  Sender: FDA-Public Use
  Company Number: None

PATIENT
  Age: 49 Year
  Sex: Female
  Weight: 105.69 kg

DRUGS (8)
  1. LIPITOR [Concomitant]
     Active Substance: ATORVASTATIN CALCIUM
  2. ASPIRIN. [Concomitant]
     Active Substance: ASPIRIN
  3. ZOLOFT [Concomitant]
     Active Substance: SERTRALINE HYDROCHLORIDE
  4. NAPROXEN. [Concomitant]
     Active Substance: NAPROXEN
  5. LISINOPRIL. [Concomitant]
     Active Substance: LISINOPRIL
  6. AMARYL [Concomitant]
     Active Substance: GLIMEPIRIDE
  7. GENTAMICIN OPHTHALMIC OINTMENT 0.3% [Suspect]
     Active Substance: GENTAMICIN
     Indication: EYE IRRITATION
     Dosage: 0.25 INCHES
     Route: 047
     Dates: start: 20150406, end: 20150410
  8. METFORMIN [Concomitant]
     Active Substance: METFORMIN HYDROCHLORIDE

REACTIONS (4)
  - Condition aggravated [None]
  - Instillation site discharge [None]
  - Instillation site erythema [None]
  - Instillation site pruritus [None]

NARRATIVE: CASE EVENT DATE: 20150411
